FAERS Safety Report 6639100-4 (Version None)
Quarter: 2010Q1

REPORT INFORMATION
  Report Type: 
  Country: None (occurrence: None)
  Receive Date: 20100312
  Receipt Date: 20100301
  Transmission Date: 20100710
  Serious: Yes (Other)
  Sender: FDA-Public Use
  Company Number: B0638557A

PATIENT
  Sex: 0

DRUGS (1)
  1. ROSIGLITAZONE MALEATE [Suspect]
     Indication: DRUG USE FOR UNKNOWN INDICATION
     Dosage: TRANSPLACENTARY
     Route: 064

REACTIONS (2)
  - MATERNAL DRUGS AFFECTING FOETUS [None]
  - MULTIPLE CONGENITAL ABNORMALITIES [None]
